FAERS Safety Report 7135770-5 (Version None)
Quarter: 2010Q4

REPORT INFORMATION
  Report Type: 
  Country: None (occurrence: None)
  Receive Date: 20101203
  Receipt Date: 20101129
  Transmission Date: 20110411
  Serious: Yes (Hospitalization, Other)
  Sender: FDA-Public Use
  Company Number: JP-PFIZER INC-2010131394

PATIENT
  Age: 79 Year
  Sex: Male
  Weight: 47 kg

DRUGS (14)
  1. SERTRALINE HYDROCHLORIDE [Suspect]
     Indication: DEPRESSION
     Dosage: 25 MG, 1X/DAY
     Route: 048
     Dates: start: 20100325, end: 20100413
  2. BROTIZOLAM [Suspect]
     Indication: DEPRESSION
     Dosage: 0.25 MG, 1X/DAY
     Route: 048
     Dates: start: 20100325, end: 20100430
  3. BROTIZOLAM [Suspect]
     Indication: INSOMNIA RELATED TO ANOTHER MENTAL CONDITION
  4. LORAZEPAM [Suspect]
     Indication: INSOMNIA RELATED TO ANOTHER MENTAL CONDITION
     Dosage: 1 MG, 2X/DAY
     Route: 048
     Dates: start: 20100325, end: 20100414
  5. QUAZEPAM [Suspect]
     Indication: INSOMNIA RELATED TO ANOTHER MENTAL CONDITION
     Dosage: 15 MG, 1X/DAY
     Route: 048
     Dates: start: 20100405, end: 20100419
  6. ZYPREXA [Suspect]
     Indication: DECREASED APPETITE
     Dosage: 1.25 MG, 1X/DAY
     Route: 048
     Dates: start: 20100409, end: 20100413
  7. CALCIUM POLYSTYRENE SULFONATE [Concomitant]
     Indication: HYPERKALAEMIA
     Dosage: 25 G, 2X/DAY
     Route: 048
  8. ADALAT [Concomitant]
     Indication: HYPERTENSION
     Dosage: 40 MG, 1X/DAY
     Route: 048
  9. PLAVIX [Concomitant]
     Indication: HYPERTENSION
     Dosage: 75 MG, 1X/DAY
     Route: 048
  10. ENALAPRIL MALEATE [Concomitant]
     Indication: HYPERTENSION
     Dosage: 1.25 MG, 1X/DAY
     Route: 048
  11. NORVASC [Concomitant]
     Indication: HYPERTENSION
     Dosage: 2.5 MG, 1X/DAY
     Route: 048
  12. LANSOPRAZOLE [Concomitant]
     Indication: GASTRITIS
     Dosage: 15 MG, 1X/DAY
     Route: 048
  13. ASPIRIN [Concomitant]
     Indication: CEREBRAL INFARCTION
     Dosage: 100 MG, 1X/DAY
     Route: 048
  14. MUCODYNE [Concomitant]
     Indication: CHRONIC OBSTRUCTIVE PULMONARY DISEASE
     Dosage: 500 MG, 3X/DAY
     Route: 048

REACTIONS (2)
  - EXTRAPYRAMIDAL DISORDER [None]
  - FALL [None]
